FAERS Safety Report 8837665 (Version 3)
Quarter: 2012Q4

REPORT INFORMATION
  Report Type: 
  Country: JP (occurrence: JP)
  Receive Date: 20121012
  Receipt Date: 20121105
  Transmission Date: 20130627
  Serious: Yes (Death, Other)
  Sender: FDA-Public Use
  Company Number: PHHY2012JP090116

PATIENT
  Age: 63 Year
  Sex: Female

DRUGS (1)
  1. NEORAL [Suspect]
     Indication: CORD BLOOD TRANSPLANT THERAPY
     Route: 048

REACTIONS (18)
  - Gastrointestinal haemorrhage [Fatal]
  - Shock haemorrhagic [Fatal]
  - Haematemesis [Fatal]
  - Melaena [Fatal]
  - Pyrexia [Fatal]
  - Peripheral T-cell lymphoma unspecified [Fatal]
  - Epstein-Barr virus associated lymphoma [Fatal]
  - Necrotising fasciitis [Unknown]
  - Epstein-Barr virus infection [Unknown]
  - Toxic encephalopathy [Unknown]
  - Graft versus host disease [Unknown]
  - Diarrhoea [Unknown]
  - Dermatitis [Unknown]
  - Cytomegalovirus infection [Unknown]
  - Herpes zoster [Unknown]
  - Pneumonia [Unknown]
  - Histiocytosis haematophagic [Unknown]
  - Skin lesion [Unknown]
